FAERS Safety Report 5534835-9 (Version None)
Quarter: 2007Q4

REPORT INFORMATION
  Report Type: 
  Country: None (occurrence: None)
  Receive Date: 20071130
  Receipt Date: 20071122
  Transmission Date: 20080405
  Serious: Yes (Other)
  Sender: FDA-Public Use
  Company Number: 028-21880-07111368

PATIENT
  Age: 67 Year
  Sex: Male

DRUGS (1)
  1. REVLIMID [Suspect]
     Indication: 5Q-SYNDROME
     Dosage: 10 MG, 2 IN 1 D, ORAL
     Route: 048
     Dates: start: 20070910, end: 20070101

REACTIONS (5)
  - ARTHRITIS BACTERIAL [None]
  - CARDIAC FAILURE CONGESTIVE [None]
  - NEUTROPENIA [None]
  - PNEUMONIA [None]
  - SMALL CELL LUNG CANCER STAGE UNSPECIFIED [None]
